FAERS Safety Report 20532993 (Version 4)
Quarter: 2022Q3

REPORT INFORMATION
  Report Type: Report from Study
  Country: US (occurrence: US)
  Receive Date: 20220301
  Receipt Date: 20220914
  Transmission Date: 20221027
  Serious: No
  Sender: FDA-Public Use
  Company Number: US-NOVARTISTESTPH-NVSC2022US048620

PATIENT
  Sex: Female

DRUGS (1)
  1. COSENTYX [Suspect]
     Active Substance: SECUKINUMAB
     Indication: Psoriasis
     Dosage: 300 MG, QMO
     Route: 058

REACTIONS (6)
  - Gastroenteritis viral [Not Recovered/Not Resolved]
  - Back pain [Not Recovered/Not Resolved]
  - Viral infection [Not Recovered/Not Resolved]
  - Conjunctivitis [Unknown]
  - Upper respiratory tract infection [Unknown]
  - Oral candidiasis [Unknown]
